FAERS Safety Report 22310991 (Version 1)
Quarter: 2023Q2

REPORT INFORMATION
  Report Type: Spontaneous
  Country: US (occurrence: US)
  Receive Date: 20230511
  Receipt Date: 20230511
  Transmission Date: 20230721
  Serious: No
  Sender: FDA-Public Use
  Company Number: US-TEVA-2023-US-2880921

PATIENT
  Age: 44 Year
  Sex: Female

DRUGS (1)
  1. TAMOXIFEN CITRATE [Suspect]
     Active Substance: TAMOXIFEN CITRATE
     Indication: Breast cancer
     Dosage: 20 MILLIGRAM DAILY;
     Route: 065
     Dates: start: 2011

REACTIONS (4)
  - Balance disorder [Unknown]
  - Hypotension [Unknown]
  - Feeling abnormal [Unknown]
  - Adverse drug reaction [Unknown]
